FAERS Safety Report 12946061 (Version 1)
Quarter: 2016Q4

REPORT INFORMATION
  Report Type: Spontaneous
  Country: JP (occurrence: JP)
  Receive Date: 20161116
  Receipt Date: 20161116
  Transmission Date: 20170207
  Serious: Yes (Other)
  Sender: FDA-Public Use
  Company Number: JP-ASTRAZENECA-2016SF19634

PATIENT
  Age: 80 Year
  Sex: Female
  Weight: 36 kg

DRUGS (3)
  1. IRESSA [Suspect]
     Active Substance: GEFITINIB
     Indication: LUNG ADENOCARCINOMA
     Route: 048
  2. IRESSA [Suspect]
     Active Substance: GEFITINIB
     Indication: LUNG ADENOCARCINOMA
     Route: 048
  3. GILOTRIF [Concomitant]
     Active Substance: AFATINIB
     Dosage: DOSE UNKNOWN
     Route: 065

REACTIONS (6)
  - Product use issue [Unknown]
  - Neoplasm progression [Unknown]
  - Haematuria [Recovered/Resolved]
  - Lung neoplasm [Unknown]
  - Off label use [Unknown]
  - Rash [Unknown]
